FAERS Safety Report 8407897 (Version 4)
Quarter: 2013Q1

REPORT INFORMATION
  Report Type: Report from Study
  Country: JP (occurrence: JP)
  Receive Date: 20120215
  Receipt Date: 20130108
  Transmission Date: 20140127
  Serious: Yes (Hospitalization, Other)
  Sender: FDA-Public Use
  Company Number: JP-ROCHE-1036464

PATIENT
  Sex: Female
  Weight: 110 kg

DRUGS (29)
  1. OMALIZUMAB [Suspect]
     Indication: ASTHMA
     Route: 058
     Dates: start: 20111207, end: 20111207
  2. OMALIZUMAB [Suspect]
     Route: 058
     Dates: start: 20121005
  3. ADOAIR [Concomitant]
     Route: 065
     Dates: start: 20110607, end: 201109
  4. SYMBICORT [Concomitant]
     Route: 065
     Dates: start: 20110914
  5. SYMBICORT [Concomitant]
     Route: 065
     Dates: start: 20111212
  6. SINGULAIR [Concomitant]
     Route: 065
     Dates: start: 20110607
  7. SINGULAIR [Concomitant]
     Route: 065
     Dates: start: 20111214
  8. THEOLONG [Concomitant]
     Route: 065
     Dates: start: 20110607
  9. THEOLONG [Concomitant]
     Route: 065
     Dates: start: 20111214
  10. DECADRON [Concomitant]
     Route: 065
     Dates: start: 20110607
  11. SALBUTAMOL SULFATE [Concomitant]
     Route: 065
     Dates: start: 20110607
  12. BONOTEO [Concomitant]
     Route: 065
     Dates: start: 20111117
  13. BONOTEO [Concomitant]
     Route: 065
     Dates: start: 20111214
  14. WARFARIN [Concomitant]
     Route: 065
     Dates: start: 20101122
  15. SEROQUEL [Concomitant]
     Route: 065
     Dates: start: 20110329
  16. MORPHINE [Concomitant]
     Route: 065
     Dates: start: 20111117
  17. MORPHINE [Concomitant]
     Route: 065
     Dates: start: 20111214
  18. RABEPRAZOLE SODIUM [Concomitant]
     Route: 065
     Dates: start: 20110517
  19. PROCATEROL HYDROCHLORIDE [Concomitant]
     Route: 065
     Dates: start: 20111212
  20. ASPARA-CA [Concomitant]
     Route: 065
     Dates: start: 20111214
  21. REMODELLIN [Concomitant]
     Route: 065
     Dates: start: 20111214
  22. AMBROXOL HYDROCHLORIDE [Concomitant]
     Route: 065
     Dates: start: 20111214
  23. LASIX [Concomitant]
     Route: 065
     Dates: start: 20111214
  24. CALONAL [Concomitant]
     Route: 065
     Dates: start: 20111214
  25. DEXAMETHASONE [Concomitant]
     Route: 065
     Dates: start: 20111214
  26. LACTOSE [Concomitant]
     Route: 065
     Dates: start: 20111214
  27. MAGNESIUM OXIDE [Concomitant]
     Route: 065
     Dates: start: 20111216
  28. FLUTICASONE PROPIONATE [Concomitant]
  29. MEPTIN [Concomitant]
     Route: 065
     Dates: start: 20111212

REACTIONS (6)
  - Pulmonary embolism [Recovered/Resolved]
  - Anaphylactoid reaction [Unknown]
  - Dyspnoea [Recovering/Resolving]
  - Oxygen saturation decreased [Unknown]
  - Respiratory distress [Unknown]
  - Respiratory disorder [Unknown]
